FAERS Safety Report 9139454 (Version 1)
Quarter: 2013Q1

REPORT INFORMATION
  Report Type: Spontaneous
  Country: US (occurrence: US)
  Receive Date: 20130305
  Receipt Date: 20130305
  Transmission Date: 20140127
  Serious: Yes (Hospitalization, Other)
  Sender: FDA-Public Use
  Company Number: US-ELI_LILLY_AND_COMPANY-US201303000968

PATIENT
  Sex: Female
  Weight: 50.79 kg

DRUGS (1)
  1. HUMALOG LISPRO [Suspect]
     Dosage: UNK, UNKNOWN

REACTIONS (1)
  - Blood glucose increased [Unknown]
